FAERS Safety Report 12852352 (Version 1)
Quarter: 2016Q4

REPORT INFORMATION
  Report Type: Spontaneous
  Country: US (occurrence: US)
  Receive Date: 20161015
  Receipt Date: 20161015
  Transmission Date: 20170207
  Serious: Yes (Disabling, Other)
  Sender: FDA-Public Use
  Company Number: None

PATIENT
  Age: 53 Year
  Sex: Female
  Weight: 111.15 kg

DRUGS (6)
  1. CENTRUM SILVER WOMEN 50+ DAY [Concomitant]
  2. ACETAMINOPHEN. [Concomitant]
     Active Substance: ACETAMINOPHEN
  3. THYROID [Suspect]
     Active Substance: LEVOTHYROXINE\LIOTHYRONINE
     Indication: HYPOTHYROIDISM
     Dosage: ?          QUANTITY:1 TABLET(S);?
     Route: 048
     Dates: start: 20160920, end: 20161008
  4. THYROID NP [Concomitant]
  5. SINUS CONGESTION AND PAIN MEDICATION [Concomitant]
  6. PHENYLEPHRINE [Concomitant]
     Active Substance: PHENYLEPHRINE\PHENYLEPHRINE HYDROCHLORIDE

REACTIONS (6)
  - Depression [None]
  - Abdominal distension [None]
  - Urine output decreased [None]
  - Asthenia [None]
  - Activities of daily living impaired [None]
  - Fibromyalgia [None]

NARRATIVE: CASE EVENT DATE: 20161007
